FAERS Safety Report 24565062 (Version 4)
Quarter: 2024Q4

REPORT INFORMATION
  Report Type: Spontaneous
  Country: US (occurrence: US)
  Receive Date: 20241030
  Receipt Date: 20241115
  Transmission Date: 20250115
  Serious: Yes (Hospitalization, Other)
  Sender: ROCHE
  Company Number: US-ROCHE-10000116267

PATIENT
  Age: 33 Year
  Sex: Male
  Weight: 74.38 kg

DRUGS (4)
  1. RITUXAN [Suspect]
     Active Substance: RITUXIMAB
     Indication: Pemphigus
     Dosage: TWO, 1000MG INFUSIONS, SEPARATED BY TWO WEEKS.
     Route: 042
     Dates: start: 20130828
  2. RITUXAN [Suspect]
     Active Substance: RITUXIMAB
     Dosage: TWO, 1000MG INFUSIONS, SEPARATED BY TWO WEEKS.
     Route: 042
     Dates: start: 20130913
  3. MYCOPHENOLATE MOFETIL [Concomitant]
     Active Substance: MYCOPHENOLATE MOFETIL
     Dates: start: 201209, end: 201405
  4. PREDNISONE [Concomitant]
     Active Substance: PREDNISONE
     Dates: start: 201209, end: 201403

REACTIONS (21)
  - Cerebrovascular accident [Recovered/Resolved with Sequelae]
  - Tuberculosis [Recovered/Resolved]
  - Haemoptysis [Recovered/Resolved]
  - Latent tuberculosis [Not Recovered/Not Resolved]
  - Mobility decreased [Not Recovered/Not Resolved]
  - Fall [Unknown]
  - Muscle atrophy [Not Recovered/Not Resolved]
  - Hypertension [Unknown]
  - Cerebral thrombosis [Not Recovered/Not Resolved]
  - Dizziness [Unknown]
  - Gastritis [Recovered/Resolved]
  - Rectal haemorrhage [Recovered/Resolved]
  - Tremor [Unknown]
  - Nausea [Recovered/Resolved]
  - Diarrhoea [Recovered/Resolved]
  - Weight decreased [Unknown]
  - Pyrexia [Unknown]
  - Visual impairment [Not Recovered/Not Resolved]
  - Skin infection [Unknown]
  - Hyperhidrosis [Unknown]
  - Blood cholesterol increased [Unknown]

NARRATIVE: CASE EVENT DATE: 20140101
